FAERS Safety Report 6501415-8 (Version None)
Quarter: 2009Q4

REPORT INFORMATION
  Report Type: 
  Country: None (occurrence: None)
  Receive Date: 20091216
  Receipt Date: 20091203
  Transmission Date: 20100525
  Serious: Yes (Life-Threatening, Other)
  Sender: FDA-Public Use
  Company Number: DE-GENENTECH-295026

PATIENT
  Age: 56 Year

DRUGS (3)
  1. MABTHERA [Suspect]
     Indication: CHRONIC LYMPHOCYTIC LEUKAEMIA
     Dosage: 375 MG/M2, Q28D
     Route: 065
     Dates: start: 20090225, end: 20090501
  2. MABTHERA [Suspect]
     Dosage: 500 MG/M2, Q28D
     Dates: end: 20090529
  3. BISOPROLOL [Concomitant]
     Indication: HYPERTENSION

REACTIONS (2)
  - AGRANULOCYTOSIS [None]
  - LUNG INFILTRATION [None]
